FAERS Safety Report 7816508-2 (Version None)
Quarter: 2011Q4

REPORT INFORMATION
  Report Type: 
  Country: None (occurrence: None)
  Receive Date: 20111017
  Receipt Date: 20111005
  Transmission Date: 20120403
  Serious: Yes (Other)
  Sender: FDA-Public Use
  Company Number: PL-RANBAXY-2011R1-48852

PATIENT
  Age: 28 Year
  Sex: Male

DRUGS (4)
  1. LEVOTHYROXINE SODIUM [Interacting]
     Dosage: 300UG/DAY
     Route: 065
  2. METFORMIN HYDROCHLORIDE [Interacting]
     Dosage: 2.55G/DAY
     Route: 065
  3. LEVOTHYROXINE SODIUM [Interacting]
     Indication: HYPOTHYROIDISM
     Dosage: 500UG DAILY
     Route: 065
  4. METFORMIN HYDROCHLORIDE [Suspect]
     Indication: TYPE 2 DIABETES MELLITUS
     Dosage: 500MG/DAY
     Route: 065

REACTIONS (2)
  - HYPERTHYROIDISM [None]
  - DRUG INTERACTION [None]
